FAERS Safety Report 19412666 (Version 1)
Quarter: 2021Q2

REPORT INFORMATION
  Report Type: Spontaneous
  Country: CA (occurrence: CA)
  Receive Date: 20210614
  Receipt Date: 20210614
  Transmission Date: 20210717
  Serious: Yes (Life-Threatening, Other)
  Sender: FDA-Public Use
  Company Number: CA-ACCORD-228243

PATIENT
  Age: 58 Year
  Sex: Female
  Weight: 98 kg

DRUGS (14)
  1. ATIVAN [Concomitant]
     Active Substance: LORAZEPAM
  2. CARBOPLATIN. [Concomitant]
     Active Substance: CARBOPLATIN
     Dosage: SOLUITON INTRAVENOUS
  3. DECADRON [Concomitant]
     Active Substance: DEXAMETHASONE
  4. TAXOL [Concomitant]
     Active Substance: PACLITAXEL
     Dosage: SOLUTION INTRAVENOUS
  5. NICOTINE. [Concomitant]
     Active Substance: NICOTINE
  6. ZOFRAN [Concomitant]
     Active Substance: ONDANSETRON HYDROCHLORIDE
  7. NEURONTIN [Concomitant]
     Active Substance: GABAPENTIN
  8. PACLITAXEL/PACLITAXEL LIPOSOME [Suspect]
     Active Substance: PACLITAXEL
     Indication: ADENOCARCINOMA
     Dosage: SOLUTION INTRAVENOUS
     Route: 042
  9. ASPIRIN. [Concomitant]
     Active Substance: ASPIRIN
  10. HYDROMORPH CONTIN [Concomitant]
     Active Substance: HYDROMORPHONE
     Dosage: CAPSULE SUSTAINED RELEASE
  11. CRESTOR [Concomitant]
     Active Substance: ROSUVASTATIN CALCIUM
  12. INSPIOLTO RESPIMAT [Concomitant]
     Active Substance: OLODATEROL HYDROCHLORIDE\TIOTROPIUM BROMIDE MONOHYDRATE
     Dosage: SOLUTION INHALATION , ORAL INHALATION WITH INSPIOLTO RESPIMAT INHALER
  13. LASIX [Concomitant]
     Active Substance: FUROSEMIDE
  14. PROCHLORPERAZINE. [Concomitant]
     Active Substance: PROCHLORPERAZINE

REACTIONS (4)
  - Dyspnoea [Recovered/Resolved]
  - Anxiety [Recovered/Resolved]
  - Oxygen saturation decreased [Recovered/Resolved]
  - Cardiac arrest [Recovered/Resolved]
